FAERS Safety Report 4781310-5 (Version None)
Quarter: 2005Q3

REPORT INFORMATION
  Report Type: 
  Country: None (occurrence: None)
  Receive Date: 20050914
  Receipt Date: 20050414
  Transmission Date: 20060218
  Serious: Yes (Death)
  Sender: FDA-Public Use
  Company Number: 163-20785-05040332

PATIENT
  Age: 68 Year
  Sex: Female

DRUGS (1)
  1. THALOMID [Suspect]
     Indication: SYSTEMIC SCLEROSIS
     Dosage: 50-150MG, DAILY, ORAL
     Route: 048
     Dates: start: 20040609, end: 20050401

REACTIONS (1)
  - DEATH [None]
